FAERS Safety Report 13465218 (Version 2)
Quarter: 2017Q4

REPORT INFORMATION
  Report Type: Spontaneous
  Country: US (occurrence: US)
  Receive Date: 20170421
  Receipt Date: 20171005
  Transmission Date: 20180320
  Serious: No
  Sender: FDA-Public Use
  Company Number: US-B.I. PHARMACEUTICALS,INC./RIDGEFIELD-2017-BI-022667

PATIENT
  Age: 65 Year
  Sex: Female
  Weight: 80 kg

DRUGS (5)
  1. COMBIVENT [Suspect]
     Active Substance: ALBUTEROL SULFATE\IPRATROPIUM BROMIDE
     Indication: ASTHMA
     Dosage: 1 INHALTION EVERY 6 HOURS AS NEEDED;  FORM STRENGTH: 20 MCG / 100 MCG;
     Route: 055
     Dates: start: 201609
  2. METFOMIN [Concomitant]
     Active Substance: METFORMIN HYDROCHLORIDE
     Indication: DIABETES MELLITUS
     Dosage: BID;  FORM STRENGTH: 500 MG; FORMULATION: TABLET
     Route: 048
     Dates: start: 2002
  3. COZAAR [Concomitant]
     Active Substance: LOSARTAN POTASSIUM
     Indication: HYPERTENSION
     Dosage: ONCE DAILY;  FORM STRENGTH: 25 MG; FORMULATION: TABLET
     Route: 048
     Dates: start: 2002
  4. ASPIRIN. [Concomitant]
     Active Substance: ASPIRIN
     Indication: CARDIOVASCULAR EVENT PROPHYLAXIS
     Dosage: ONCE DAILY;  FORM STRENGTH: 81 MG; FORMULATION: TABLET
     Route: 048
     Dates: start: 2002
  5. VITAMIN B12 [Concomitant]
     Active Substance: CYANOCOBALAMIN
     Indication: SUPPLEMENTATION THERAPY
     Dosage: ONCE DAILY;  FORMULATION: TABLET;
     Route: 048
     Dates: start: 2016

REACTIONS (5)
  - Pneumonia [Recovered/Resolved]
  - Product quality issue [Unknown]
  - Off label use [Unknown]
  - Dyspnoea [Not Recovered/Not Resolved]
  - Bronchitis [Recovered/Resolved]

NARRATIVE: CASE EVENT DATE: 201609
